FAERS Safety Report 13191606 (Version 1)
Quarter: 2017Q1

REPORT INFORMATION
  Report Type: Spontaneous
  Country: US (occurrence: US)
  Receive Date: 20170207
  Receipt Date: 20170207
  Transmission Date: 20170428
  Serious: Yes (Hospitalization, Other)
  Sender: FDA-Public Use
  Company Number: US-ZYDUS-013652

PATIENT
  Age: 56 Year
  Sex: Male

DRUGS (4)
  1. OLANZAPINE. [Suspect]
     Active Substance: OLANZAPINE
     Indication: AGITATION
     Route: 065
  2. CLOZAPINE. [Suspect]
     Active Substance: CLOZAPINE
     Indication: PSYCHOTIC DISORDER
     Route: 065
  3. HALOPERIDOL. [Suspect]
     Active Substance: HALOPERIDOL
     Indication: AGITATION
     Route: 030
  4. ZIPRASIDONE/ZIPRASIDONE HYDROCHLORIDE/ZIPRASIDONE MESILATE [Suspect]
     Active Substance: ZIPRASIDONE HYDROCHLORIDE\ZIPRASIDONE MESYLATE
     Indication: AGITATION
     Route: 065

REACTIONS (11)
  - Delirium [Recovered/Resolved]
  - Blood creatine phosphokinase increased [Unknown]
  - Muscle rigidity [Unknown]
  - Rhabdomyolysis [Unknown]
  - Subdural haematoma [Unknown]
  - Hyperthermia [Unknown]
  - Confusional state [Recovered/Resolved]
  - Radial nerve palsy [Unknown]
  - White blood cell count increased [Unknown]
  - Neuroleptic malignant syndrome [Unknown]
  - Intentional self-injury [Recovered/Resolved]
